FAERS Safety Report 7497276-3 (Version None)
Quarter: 2011Q2

REPORT INFORMATION
  Report Type: 
  Country: None (occurrence: None)
  Receive Date: 20110516
  Receipt Date: 20110503
  Transmission Date: 20111010
  Serious: Yes (Hospitalization, Other)
  Sender: FDA-Public Use
  Company Number: BR-000317

PATIENT
  Sex: Female

DRUGS (1)
  1. NAGLAZYME [Suspect]
     Indication: MUCOPOLYSACCHARIDOSIS VI
     Dosage: (20 MG 1X/WEEK INTRAVENOUS DRIP)
     Route: 041
     Dates: start: 20090205

REACTIONS (7)
  - EXOPHTHALMOS [None]
  - CERVICAL SPINAL STENOSIS [None]
  - HEADACHE [None]
  - CERVICAL CORD COMPRESSION [None]
  - INTRACRANIAL PRESSURE INCREASED [None]
  - ACQUIRED FORAMEN MAGNUM STENOSIS [None]
  - PAPILLOEDEMA [None]
